FAERS Safety Report 9575718 (Version 1)
Quarter: 2013Q4

REPORT INFORMATION
  Report Type: Spontaneous
  Country: US (occurrence: US)
  Receive Date: 20131001
  Receipt Date: 20131001
  Transmission Date: 20140711
  Serious: No
  Sender: FDA-Public Use
  Company Number: US-AMGEN-USASP2012037592

PATIENT
  Sex: Female

DRUGS (3)
  1. PROCRIT [Suspect]
     Indication: PRODUCT USED FOR UNKNOWN INDICATION
     Dosage: 40 IU, UNK
     Route: 058
     Dates: end: 2010
  2. PROCRIT [Suspect]
     Dosage: 20 IU, UNK
     Route: 058
     Dates: start: 2010
  3. VENLAFAXINE HYDROCHLORIDE [Concomitant]
     Dosage: UNK
     Route: 048
     Dates: start: 2011

REACTIONS (5)
  - Social problem [Not Recovered/Not Resolved]
  - Therapeutic response unexpected with drug substitution [Not Recovered/Not Resolved]
  - Therapeutic response decreased [Not Recovered/Not Resolved]
  - Drug ineffective [Not Recovered/Not Resolved]
  - Fatigue [Not Recovered/Not Resolved]
